FAERS Safety Report 7153019-4 (Version None)
Quarter: 2010Q4

REPORT INFORMATION
  Report Type: 
  Country: None (occurrence: None)
  Receive Date: 20101209
  Receipt Date: 20101209
  Transmission Date: 20110411
  Serious: Yes (Other)
  Sender: FDA-Public Use
  Company Number: None

PATIENT
  Age: 43 Year
  Sex: Female
  Weight: 70.5 kg

DRUGS (6)
  1. SINGULAIR [Suspect]
     Indication: ASTHMA
     Dosage: 1 PILL 1/DAY
     Dates: start: 20100101, end: 20101001
  2. SINGULAIR [Suspect]
     Indication: HYPERSENSITIVITY
     Dosage: 1 PILL 1/DAY
     Dates: start: 20100101, end: 20101001
  3. ZOVIA 1/35E-21 [Concomitant]
  4. ALLEGRA [Concomitant]
  5. VOLTAREN [Concomitant]
  6. XANAX [Concomitant]

REACTIONS (9)
  - ABNORMAL DREAMS [None]
  - AGORAPHOBIA [None]
  - ANXIETY [None]
  - CHEST PAIN [None]
  - DEPRESSION [None]
  - HALLUCINATION [None]
  - INSOMNIA [None]
  - MOOD SWINGS [None]
  - PALPITATIONS [None]
